FAERS Safety Report 25930446 (Version 1)
Quarter: 2025Q4

REPORT INFORMATION
  Report Type: Report from Study
  Country: US (occurrence: US)
  Receive Date: 20251016
  Receipt Date: 20251016
  Transmission Date: 20260117
  Serious: Yes (Other)
  Sender: ABBVIE
  Company Number: US-ABBVIE-6503213

PATIENT
  Age: 6 Year
  Sex: Female

DRUGS (2)
  1. IMBRUVICA [Suspect]
     Active Substance: IBRUTINIB
     Indication: Acute graft versus host disease
     Route: 048
     Dates: start: 202510, end: 20251004
  2. IMBRUVICA [Suspect]
     Active Substance: IBRUTINIB
     Indication: Acute graft versus host disease
     Route: 048
     Dates: start: 20251009

REACTIONS (2)
  - Aspiration bone marrow [Unknown]
  - Lumbar puncture [Unknown]

NARRATIVE: CASE EVENT DATE: 20251001
